FAERS Safety Report 16348360 (Version 5)
Quarter: 2019Q3

REPORT INFORMATION
  Report Type: Spontaneous
  Country: JP (occurrence: JP)
  Receive Date: 20190523
  Receipt Date: 20190920
  Transmission Date: 20191004
  Serious: Yes (Hospitalization)
  Sender: FDA-Public Use
  Company Number: JP-AMGEN-JPNSP2019081456

PATIENT
  Age: 73 Year
  Sex: Female

DRUGS (12)
  1. G-LASTA [Suspect]
     Active Substance: PEGFILGRASTIM
     Indication: COLONY STIMULATING FACTOR THERAPY
     Dosage: 3.6 MILLIGRAM, (SINGLE)
     Route: 058
     Dates: start: 20190511, end: 20190511
  2. TAXOL [Concomitant]
     Active Substance: PACLITAXEL
     Dosage: 230 MILLIGRAM  (TOTAL 2 TIMES)
     Route: 041
     Dates: start: 20181010, end: 20181212
  3. TAXOL [Concomitant]
     Active Substance: PACLITAXEL
     Dosage: 160 MILLIGRAM
     Route: 041
     Dates: start: 20190508, end: 20190508
  4. CISPLATIN. [Concomitant]
     Active Substance: CISPLATIN
     Dosage: 50 MILLIGRAM (TOTAL 6 TIMES)
     Route: 041
     Dates: start: 20180130, end: 20180814
  5. TAXOL [Concomitant]
     Active Substance: PACLITAXEL
     Indication: CERVIX CARCINOMA
     Dosage: 260 MILLIGRAM, (TOTAL 6 TIMES)
     Route: 041
     Dates: start: 20180130, end: 20180814
  6. CARBOPLATIN. [Suspect]
     Active Substance: CARBOPLATIN
     Indication: CERVIX CARCINOMA
     Dosage: 250 MILLIGRAM (A TOTAL OF 6 TIMES)
     Route: 041
     Dates: start: 20190226, end: 20190711
  7. AVASTIN [Concomitant]
     Active Substance: BEVACIZUMAB
     Indication: CERVIX CARCINOMA
     Dosage: 7 MILLIGRAM, (TOTAL 6 TIMES)
     Route: 041
     Dates: start: 20180130, end: 20180814
  8. TAXOL [Concomitant]
     Active Substance: PACLITAXEL
     Dosage: 200 MILLIGRAM, (TOTAL 6 TIMES)
     Route: 041
     Dates: start: 20190226, end: 20190711
  9. CISPLATIN. [Concomitant]
     Active Substance: CISPLATIN
     Indication: CERVIX CARCINOMA
     Dosage: UNK UNK, QWK
     Route: 041
     Dates: start: 20170613, end: 20170617
  10. AVASTIN [Concomitant]
     Active Substance: BEVACIZUMAB
     Dosage: 600 MILLIGRAM, (TOTAL 2 TIMES)
     Route: 041
     Dates: start: 20181010, end: 20181212
  11. CARBOPLATIN. [Suspect]
     Active Substance: CARBOPLATIN
     Dosage: 220 MILLIGRAM
     Route: 041
     Dates: start: 20190508, end: 20190508
  12. CISPLATIN. [Concomitant]
     Active Substance: CISPLATIN
     Dosage: 45 MILLIGRAM, (TOTAL 2 TIMES)
     Route: 041
     Dates: start: 20181010, end: 20181212

REACTIONS (1)
  - Platelet count decreased [Recovered/Resolved]

NARRATIVE: CASE EVENT DATE: 20190517
